FAERS Safety Report 7642442-7 (Version None)
Quarter: 2011Q3

REPORT INFORMATION
  Report Type: 
  Country: None (occurrence: None)
  Receive Date: 20110728
  Receipt Date: 20110228
  Transmission Date: 20111222
  Serious: No
  Sender: FDA-Public Use
  Company Number: US-MYLANLABS-2011S1003078

PATIENT
  Age: 68 Year
  Sex: Female

DRUGS (7)
  1. LEVOTHYROXINE SODIUM [Suspect]
     Indication: HYPOTHYROIDISM
     Route: 048
     Dates: start: 20101117, end: 20110124
  2. MELOXICAM [Concomitant]
     Indication: ARTHRITIS
     Route: 048
  3. METOPROLOL TARTRATE [Concomitant]
     Indication: BLOOD PRESSURE
     Route: 048
  4. TRAVATAN [Concomitant]
     Route: 047
  5. SIMVASTATIN [Concomitant]
     Indication: BLOOD PRESSURE
     Route: 048
  6. LISINOPRIL AND HYDROCHLOROTHIAZIDE [Concomitant]
     Indication: BLOOD PRESSURE
     Dosage: 20/25MG
     Route: 048
  7. TIMOLOL MALEATE [Concomitant]
     Indication: GLAUCOMA
     Route: 047

REACTIONS (4)
  - SOMNOLENCE [None]
  - FATIGUE [None]
  - DRUG INEFFECTIVE [None]
  - ASTHENIA [None]
